FAERS Safety Report 8977961 (Version 2)
Quarter: 2012Q4

REPORT INFORMATION
  Report Type: 
  Country: GB (occurrence: GB)
  Receive Date: 20121219
  Receipt Date: 20121221
  Transmission Date: 20130627
  Serious: Yes (Other)
  Sender: FDA-Public Use
  Company Number: GB-PFIZER INC-2012314583

PATIENT
  Age: 22 Year
  Sex: Female
  Weight: 92.07 kg

DRUGS (3)
  1. IBUPROFEN [Suspect]
     Dosage: UNK
  2. METRONIDAZOLE [Suspect]
     Indication: DENTAL ABSCESS
     Dosage: 400 mg, UNK
     Route: 048
     Dates: start: 20121127, end: 20121130
  3. PARACETAMOL [Concomitant]
     Dosage: UNK

REACTIONS (5)
  - Dysgeusia [Not Recovered/Not Resolved]
  - Dehydration [Not Recovered/Not Resolved]
  - Gastrooesophageal reflux disease [Not Recovered/Not Resolved]
  - Malaise [Unknown]
  - Discomfort [Unknown]
